FAERS Safety Report 24005742 (Version 2)
Quarter: 2024Q2

REPORT INFORMATION
  Report Type: Spontaneous
  Country: US (occurrence: US)
  Receive Date: 20240624
  Receipt Date: 20240626
  Transmission Date: 20240716
  Serious: No
  Sender: FDA-Public Use
  Company Number: US-PFIZER INC-202400198774

PATIENT
  Age: 77 Year
  Sex: Female
  Weight: 81.646 kg

DRUGS (1)
  1. SULFASALAZINE [Suspect]
     Active Substance: SULFASALAZINE
     Indication: Colitis
     Dosage: 500 MG, 2X/DAY (2 TABLETS TWICE DAILY)
     Dates: start: 1977

REACTIONS (3)
  - Rash macular [Unknown]
  - Blister [Unknown]
  - Off label use [Unknown]

NARRATIVE: CASE EVENT DATE: 19770101
